FAERS Safety Report 9162020 (Version 1)
Quarter: 2013Q1

REPORT INFORMATION
  Report Type: Spontaneous
  Country: US (occurrence: None)
  Receive Date: 20130225
  Receipt Date: 20130225
  Transmission Date: 20140127
  Serious: Yes (Hospitalization)
  Sender: FDA-Public Use
  Company Number: FK201300568

PATIENT
  Sex: Male

DRUGS (8)
  1. FLUOROURACIL [Suspect]
     Indication: PRODUCT USED FOR UNKNOWN INDICATION
     Route: 042
  2. FLUOROURACIL [Suspect]
     Indication: PRODUCT USED FOR UNKNOWN INDICATION
     Route: 042
  3. FLUOROURACIL [Suspect]
     Route: 042
  4. FLUOROURACIL [Suspect]
     Route: 042
  5. FOLINIC ACID [Suspect]
     Indication: PRODUCT USED FOR UNKNOWN INDICATION
     Route: 042
  6. FOLINIC ACID [Suspect]
     Indication: PRODUCT USED FOR UNKNOWN INDICATION
     Route: 042
  7. IRINOTECAN [Suspect]
     Route: 042
  8. ZALTRAP [Suspect]
     Indication: PRODUCT USED FOR UNKNOWN INDICATION
     Route: 042

REACTIONS (3)
  - Transient ischaemic attack [None]
  - Cerebrovascular accident [None]
  - Hyperglycaemia [None]
